FAERS Safety Report 4638877-7 (Version None)
Quarter: 2005Q2

REPORT INFORMATION
  Report Type: 
  Country: None (occurrence: None)
  Receive Date: 20050419
  Receipt Date: 20050407
  Transmission Date: 20051028
  Serious: Yes (Other)
  Sender: FDA-Public Use
  Company Number: GB-JNJFOC-20050401789

PATIENT
  Age: 66 Year
  Sex: Female

DRUGS (1)
  1. RISPERDAL CONSTA [Suspect]
     Indication: SCHIZOPHRENIA
     Dosage: FOR OVER TWO YEARS
     Route: 030

REACTIONS (2)
  - CEREBROVASCULAR ACCIDENT [None]
  - TINNITUS [None]
